FAERS Safety Report 19057261 (Version 2)
Quarter: 2021Q2

REPORT INFORMATION
  Report Type: Spontaneous
  Country: CA (occurrence: CA)
  Receive Date: 20210325
  Receipt Date: 20210518
  Transmission Date: 20210717
  Serious: No
  Sender: FDA-Public Use
  Company Number: CA-UCBSA-2021009797

PATIENT

DRUGS (1)
  1. NEUPRO [Suspect]
     Active Substance: ROTIGOTINE
     Indication: RESTLESS LEGS SYNDROME
     Dosage: 6 MILLIGRAM, ONCE DAILY (QD)
     Dates: start: 2021

REACTIONS (2)
  - Product adhesion issue [Unknown]
  - Overdose [Unknown]
